FAERS Safety Report 7488209-4 (Version None)
Quarter: 2011Q2

REPORT INFORMATION
  Report Type: 
  Country: None (occurrence: None)
  Receive Date: 20110518
  Receipt Date: 20110511
  Transmission Date: 20111010
  Serious: Yes (Other)
  Sender: FDA-Public Use
  Company Number: HU-ROCHE-776653

PATIENT
  Sex: Female

DRUGS (2)
  1. PACLITAXEL [Suspect]
     Dosage: DOSE FORM: INFUSION. LAST DOSE PRIOR TO SAE: 14 APRIL 2009
     Route: 065
     Dates: start: 20090407, end: 20090421
  2. BEVACIZUMAB [Suspect]
     Dosage: DOSE FORM: INFUSION, LAST DOSE PRIOR TO SAE: 7 APRIL 2009
     Route: 065
     Dates: start: 20090407, end: 20090421

REACTIONS (1)
  - GAMMA-GLUTAMYLTRANSFERASE INCREASED [None]
